FAERS Safety Report 24604422 (Version 2)
Quarter: 2025Q1

REPORT INFORMATION
  Report Type: Spontaneous
  Country: US (occurrence: US)
  Receive Date: 20241111
  Receipt Date: 20250324
  Transmission Date: 20250408
  Serious: No
  Sender: TRAVERE THERAPEUTICS
  Company Number: US-TRAVERE-2024TVT01115

PATIENT
  Age: 33 Year
  Sex: Male

DRUGS (2)
  1. FILSPARI [Suspect]
     Active Substance: SPARSENTAN
     Indication: IgA nephropathy
     Route: 048
     Dates: start: 20241030
  2. FILSPARI [Suspect]
     Active Substance: SPARSENTAN
     Route: 048

REACTIONS (6)
  - Oropharyngeal pain [Unknown]
  - Diarrhoea [Unknown]
  - Abdominal discomfort [Unknown]
  - Fatigue [Unknown]
  - Nasopharyngitis [Unknown]
  - Sinus disorder [Unknown]
